FAERS Safety Report 7730468-4 (Version None)
Quarter: 2011Q3

REPORT INFORMATION
  Report Type: 
  Country: None (occurrence: None)
  Receive Date: 20110906
  Receipt Date: 20110901
  Transmission Date: 20111222
  Serious: Yes (Hospitalization, Other)
  Sender: FDA-Public Use
  Company Number: NO-PFIZER INC-2011203990

PATIENT
  Age: 25 Year
  Sex: Female

DRUGS (2)
  1. EFFEXOR [Suspect]
     Indication: DEPRESSION
     Dosage: 150MG DAILY
     Route: 048
     Dates: start: 20110817, end: 20110818
  2. CLOTRIMAZOLE [Concomitant]
     Dosage: UNK
     Route: 067

REACTIONS (5)
  - NAUSEA [None]
  - VOMITING [None]
  - VISUAL IMPAIRMENT [None]
  - PYREXIA [None]
  - SYNCOPE [None]
